FAERS Safety Report 9201076 (Version 1)
Quarter: 2013Q2

REPORT INFORMATION
  Report Type: Spontaneous
  Country: US (occurrence: US)
  Receive Date: 20130401
  Receipt Date: 20130401
  Transmission Date: 20140414
  Serious: No
  Sender: FDA-Public Use
  Company Number: US-PFIZER INC-2013101754

PATIENT
  Age: 68 Year
  Sex: Male
  Weight: 82.99 kg

DRUGS (2)
  1. CHANTIX [Suspect]
     Indication: SMOKING CESSATION THERAPY
     Dosage: UNK, 1X/DAY
     Dates: start: 20130309
  2. CHANTIX [Suspect]
     Dosage: UNK
     Dates: end: 20130326

REACTIONS (1)
  - Dyspnoea [Unknown]
